FAERS Safety Report 16656512 (Version 3)
Quarter: 2019Q3

REPORT INFORMATION
  Report Type: Report from Study
  Country: KR (occurrence: KR)
  Receive Date: 20190801
  Receipt Date: 20190814
  Transmission Date: 20191004
  Serious: Yes (Hospitalization)
  Sender: FDA-Public Use
  Company Number: KR-EISAI MEDICAL RESEARCH-EC-2019-059879

PATIENT
  Age: 65 Year
  Sex: Male
  Weight: 73.6 kg

DRUGS (16)
  1. OLMETEC [Concomitant]
     Active Substance: OLMESARTAN MEDOXOMIL
  2. BRONCHO-VAXOM [Concomitant]
  3. UREA. [Concomitant]
     Active Substance: UREA
  4. BRUFEN [Concomitant]
     Active Substance: IBUPROFEN
  5. BUSCOPAN [Concomitant]
     Active Substance: BUTYLSCOPOLAMINE BROMIDE
  6. CEREBREX [Concomitant]
     Active Substance: CALCIUM GLYCEROPHOSPHATE\CALCIUM PHOSPHATE\GLUTAMIC ACID\VITAMIN B
  7. CONCOR [Concomitant]
     Active Substance: BISOPROLOL FUMARATE
  8. DICETEL [Concomitant]
     Active Substance: PINAVERIUM BROMIDE
  9. EBASTEL [Concomitant]
     Active Substance: EBASTINE
  10. ADALAT [Concomitant]
     Active Substance: NIFEDIPINE
  11. DERMOVATE [Concomitant]
     Active Substance: CLOBETASOL
  12. SYNTHYROXINE [Concomitant]
     Active Substance: LEVOTHYROXINE SODIUM
  13. DEXILANT [Concomitant]
     Active Substance: DEXLANSOPRAZOLE
  14. TAMSNAL [Concomitant]
  15. DICAMAX [Concomitant]
  16. LENVATINIB [Suspect]
     Active Substance: LENVATINIB
     Indication: THYROID CANCER
     Dosage: BLINDED DOSE
     Route: 048
     Dates: start: 20190328, end: 20190718

REACTIONS (1)
  - Pneumothorax [Recovered/Resolved]

NARRATIVE: CASE EVENT DATE: 20190729
